FAERS Safety Report 5872171-1 (Version None)
Quarter: 2008Q3

REPORT INFORMATION
  Report Type: 
  Country: None (occurrence: None)
  Receive Date: 20080905
  Receipt Date: 20080827
  Transmission Date: 20090109
  Serious: Yes (Other)
  Sender: FDA-Public Use
  Company Number: US-JNJFOC-20080806268

PATIENT
  Sex: Female
  Weight: 66.23 kg

DRUGS (2)
  1. REMICADE [Suspect]
     Dosage: TOTAL OF THREE INFUSIONS ADMINISTERED
     Route: 042
  2. REMICADE [Suspect]
     Indication: DRUG USE FOR UNKNOWN INDICATION
     Dosage: 2 INFUSIONS ADMINISTERED ON UNKNOWN DATES
     Route: 042

REACTIONS (6)
  - ALOPECIA [None]
  - ARTHRALGIA [None]
  - CONTUSION [None]
  - SWELLING [None]
  - VOMITING [None]
  - WEIGHT INCREASED [None]
